FAERS Safety Report 13551453 (Version 1)
Quarter: 2017Q2

REPORT INFORMATION
  Report Type: Spontaneous
  Country: US (occurrence: US)
  Receive Date: 20170516
  Receipt Date: 20170516
  Transmission Date: 20170830
  Serious: Yes (Other)
  Sender: FDA-Public Use
  Company Number: US-BAYER-2017-091705

PATIENT
  Sex: Female

DRUGS (1)
  1. MIRENA [Suspect]
     Active Substance: LEVONORGESTREL
     Indication: CONTRACEPTION
     Dosage: 20 MCG/24HR, CONT
     Route: 015
     Dates: start: 201503, end: 20170412

REACTIONS (5)
  - Device dislocation [Recovered/Resolved]
  - Pain [Recovered/Resolved]
  - Menstruation irregular [Recovered/Resolved]
  - Uterine malposition [None]
  - Complication of device removal [Recovered/Resolved]
